FAERS Safety Report 15724647 (Version 2)
Quarter: 2019Q1

REPORT INFORMATION
  Report Type: Spontaneous
  Country: US (occurrence: US)
  Receive Date: 20181214
  Receipt Date: 20190306
  Transmission Date: 20190417
  Serious: Yes (Other)
  Sender: FDA-Public Use
  Company Number: PHEH2018US052750

PATIENT
  Age: 61 Year
  Sex: Female

DRUGS (1)
  1. TASIGNA [Suspect]
     Active Substance: NILOTINIB
     Indication: CHRONIC MYELOID LEUKAEMIA
     Dosage: 2 DF, BID
     Route: 048
     Dates: start: 20101122, end: 201805

REACTIONS (23)
  - Nephrolithiasis [Unknown]
  - Peripheral arterial occlusive disease [Unknown]
  - Pleural effusion [Unknown]
  - Renal artery stenosis [Unknown]
  - Coronary artery disease [Unknown]
  - Herpes zoster [Unknown]
  - Diabetic retinopathy [Unknown]
  - Obesity [Unknown]
  - Headache [Unknown]
  - Cellulitis [Unknown]
  - Neuropathy peripheral [Unknown]
  - Osteopenia [Unknown]
  - Vascular calcification [Unknown]
  - Migraine [Unknown]
  - Cardiomegaly [Unknown]
  - Spinal column stenosis [Unknown]
  - Diabetes mellitus [Unknown]
  - Cardiac failure congestive [Unknown]
  - Anaemia [Unknown]
  - Glaucoma [Unknown]
  - Renal failure [Unknown]
  - Myocardial infarction [Unknown]
  - Eustachian tube dysfunction [Unknown]

NARRATIVE: CASE EVENT DATE: 2010
